FAERS Safety Report 25649519 (Version 1)
Quarter: 2025Q3

REPORT INFORMATION
  Report Type: Other
  Country: CA (occurrence: CA)
  Receive Date: 20250806
  Receipt Date: 20250806
  Transmission Date: 20251021
  Serious: Yes (Death)
  Sender: PFIZER
  Company Number: CA-PFIZER INC-202500157779

PATIENT
  Age: 31 Year
  Sex: Male

DRUGS (6)
  1. CISPLATIN [Suspect]
     Active Substance: CISPLATIN
     Indication: Osteosarcoma
     Route: 065
  2. DOXORUBICIN HYDROCHLORIDE [Suspect]
     Active Substance: DOXORUBICIN HYDROCHLORIDE
     Indication: Osteosarcoma
     Route: 065
  3. ALECTINIB [Suspect]
     Active Substance: ALECTINIB
     Indication: Rhabdomyosarcoma
     Route: 048
  4. ETOPOSIDE [Suspect]
     Active Substance: ETOPOSIDE
     Indication: Rhabdomyosarcoma
     Route: 065
  5. IFOSFAMIDE [Suspect]
     Active Substance: IFOSFAMIDE
     Indication: Rhabdomyosarcoma
     Route: 065
  6. REGORAFENIB [Suspect]
     Active Substance: REGORAFENIB
     Indication: Rhabdomyosarcoma
     Dosage: 160 MG, 1 EVERY 1 DAY
     Route: 048

REACTIONS (5)
  - Osteosarcoma [Fatal]
  - Malignant neoplasm progression [Fatal]
  - Mucosal inflammation [Fatal]
  - Toxicity to various agents [Fatal]
  - Off label use [Unknown]
